FAERS Safety Report 24648718 (Version 3)
Quarter: 2025Q1

REPORT INFORMATION
  Report Type: Spontaneous
  Country: US (occurrence: US)
  Receive Date: 20241121
  Receipt Date: 20250113
  Transmission Date: 20250408
  Serious: No
  Sender: PFIZER
  Company Number: US-PFIZER INC-PV202400150153

PATIENT
  Age: 61 Year
  Sex: Female
  Weight: 61.224 kg

DRUGS (2)
  1. ESTRADIOL [Suspect]
     Active Substance: ESTRADIOL
     Indication: Hot flush
     Dosage: 1 MG, 1X/DAY
     Route: 048
     Dates: start: 202401, end: 20240625
  2. ESTRADIOL [Suspect]
     Active Substance: ESTRADIOL
     Indication: Mood swings

REACTIONS (3)
  - Alopecia [Recovered/Resolved]
  - Pain in extremity [Recovered/Resolved]
  - Arthralgia [Recovered/Resolved]

NARRATIVE: CASE EVENT DATE: 20240101
